FAERS Safety Report 6389703-X (Version None)
Quarter: 2009Q4

REPORT INFORMATION
  Report Type: 
  Country: None (occurrence: None)
  Receive Date: 20091002
  Receipt Date: 20091002
  Transmission Date: 20100525
  Serious: Yes (Other)
  Sender: FDA-Public Use
  Company Number: None

PATIENT
  Sex: Female

DRUGS (1)
  1. PH7 ANTICAVITY FLUORIDE RINSE 2% SODIUM FLOURIDE PASCAL [Suspect]
     Indication: DENTAL DISORDER PROPHYLAXIS
     Dosage: 1/2 OUNCE ONCE EVERY 6 MONTH DENTAL ONCE
     Route: 004
     Dates: start: 20090901, end: 20090915

REACTIONS (2)
  - CHEST DISCOMFORT [None]
  - DYSPNOEA [None]
